FAERS Safety Report 13188842 (Version 1)
Quarter: 2017Q1

REPORT INFORMATION
  Report Type: Spontaneous
  Country: US (occurrence: US)
  Receive Date: 20170205
  Receipt Date: 20170205
  Transmission Date: 20170428
  Serious: Yes (Disabling, Other)
  Sender: FDA-Public Use
  Company Number: None

PATIENT
  Age: 35 Year
  Sex: Male
  Weight: 78.75 kg

DRUGS (2)
  1. LEVAQUIN [Suspect]
     Active Substance: LEVOFLOXACIN
     Indication: KIDNEY INFECTION
     Dosage: ?          QUANTITY:21 TABLET(S);?
     Dates: start: 20060315, end: 20060407
  2. CIPROFLOXIN [Suspect]
     Active Substance: CIPROFLOXACIN
     Indication: URINARY TRACT INFECTION
     Route: 048
     Dates: start: 20150503, end: 20150510

REACTIONS (18)
  - Paraesthesia [None]
  - Gait disturbance [None]
  - Asthenia [None]
  - Toxicity to various agents [None]
  - Feeling abnormal [None]
  - Suicidal ideation [None]
  - Fatigue [None]
  - Depressed mood [None]
  - Muscle twitching [None]
  - Arthralgia [None]
  - Neuropathy peripheral [None]
  - Tendon pain [None]
  - Pain [None]
  - Muscular weakness [None]
  - Insomnia [None]
  - Speech disorder [None]
  - Pain in extremity [None]
  - Stress [None]

NARRATIVE: CASE EVENT DATE: 20060315
